FAERS Safety Report 10097794 (Version 1)
Quarter: 2014Q2

REPORT INFORMATION
  Report Type: Spontaneous
  Country: US (occurrence: US)
  Receive Date: 20140423
  Receipt Date: 20140423
  Transmission Date: 20141212
  Serious: No
  Sender: FDA-Public Use
  Company Number: US-BIOGENIDEC-2014BI035275

PATIENT
  Age: 40 Year
  Sex: Female
  Weight: 82 kg

DRUGS (7)
  1. TECFIDERA [Suspect]
     Indication: MULTIPLE SCLEROSIS
     Route: 048
     Dates: start: 201402
  2. EFFEXOR [Concomitant]
  3. NEURONTIN [Concomitant]
  4. LORTAB [Concomitant]
  5. PREVACID [Concomitant]
  6. ZOFRAN [Concomitant]
  7. XANAX [Concomitant]

REACTIONS (1)
  - Oral candidiasis [Not Recovered/Not Resolved]
